FAERS Safety Report 4683363-1 (Version None)
Quarter: 2005Q2

REPORT INFORMATION
  Report Type: 
  Country: None (occurrence: None)
  Receive Date: 20050606
  Receipt Date: 20050606
  Transmission Date: 20051028
  Serious: Yes (Life-Threatening, Hospitalization)
  Sender: FDA-Public Use
  Company Number: None

PATIENT
  Age: 62 Year
  Sex: Male

DRUGS (7)
  1. AMIODARONE [Suspect]
     Dates: start: 19960101, end: 20050511
  2. ASACOL [Concomitant]
  3. FERROUS SULFATE [Concomitant]
  4. PROTONIX [Concomitant]
  5. SYNTHROID [Concomitant]
  6. LANOXIN [Concomitant]
  7. LASIX [Concomitant]

REACTIONS (6)
  - ALCOHOL POISONING [None]
  - BIOPSY LIVER ABNORMAL [None]
  - CARDIAC DISORDER [None]
  - DRUG TOXICITY [None]
  - HEPATIC CIRRHOSIS [None]
  - HEPATIC FAILURE [None]
